FAERS Safety Report 7910710-7 (Version None)
Quarter: 2011Q4

REPORT INFORMATION
  Report Type: 
  Country: None (occurrence: None)
  Receive Date: 20111111
  Receipt Date: 20111104
  Transmission Date: 20120403
  Serious: Yes (Life-Threatening, Other)
  Sender: FDA-Public Use
  Company Number: FI-AMGEN-FINSP2011055051

PATIENT
  Age: 74 Year
  Sex: Male

DRUGS (11)
  1. CITALOPRAM HYDROBROMIDE [Concomitant]
     Indication: MOOD ALTERED
     Dosage: 10 MG, 1X/DAY IN THE MORNING
  2. ALENDRONATE SODIUM [Concomitant]
     Indication: OSTEOPOROSIS
     Dosage: 70 MG, WEEKLY
     Route: 048
  3. OFTAGEL [Concomitant]
     Indication: DRY EYE
     Dosage: 1-2 GUTTAE 2X/DAY
  4. ENBREL [Suspect]
     Indication: RHEUMATOID ARTHRITIS
     Dosage: 25 MG, 2X/WEEK
     Route: 058
     Dates: start: 20040115
  5. TAMSULOSIINIHYDROKLORIDI ARROW [Concomitant]
     Indication: BENIGN PROSTATIC HYPERPLASIA
     Dosage: 0.4 MG, 1X/DAY IN THE MORNING
  6. CALCIUM CARBONATE [Concomitant]
     Indication: OSTEOPOROSIS
     Dosage: 2X 500MG /10 UG CHEWING TABLETS DAILY
     Route: 048
  7. TRAMADOL HCL [Concomitant]
     Indication: PAIN
     Dosage: 75 MG, 2X/DAY
  8. SOLOMET                            /00049601/ [Concomitant]
     Indication: RHEUMATOID ARTHRITIS
     Dosage: 4 MG, 1-2 TABLETS DAILY
  9. PANADOL                            /00020001/ [Concomitant]
     Indication: PAIN
     Dosage: 665 MG, 2-3 TIMES DAILY
  10. OXIKLORIN [Concomitant]
     Indication: RHEUMATOID ARTHRITIS
     Dosage: 300 MG, ALTERNATE DAY
  11. NEXIUM [Concomitant]
     Indication: ABDOMINAL DISCOMFORT
     Dosage: 20-40 MG DAILY

REACTIONS (1)
  - PROSTATE CANCER [None]
